FAERS Safety Report 7435988-8 (Version None)
Quarter: 2011Q2

REPORT INFORMATION
  Report Type: 
  Country: None (occurrence: None)
  Receive Date: 20110418
  Receipt Date: 20110407
  Transmission Date: 20111010
  Serious: Yes (Hospitalization, Other)
  Sender: FDA-Public Use
  Company Number: US-1185429

PATIENT
  Age: 77 Year
  Sex: Male
  Weight: 97.0698 kg

DRUGS (7)
  1. METFORMIN [Concomitant]
  2. SIMVASTATIN [Concomitant]
  3. FUROSEMIDE [Concomitant]
  4. GLYBURIDE [Concomitant]
  5. DITROPAN [Concomitant]
  6. WARFARIN [Concomitant]
  7. TRAVATAN Z [Suspect]
     Indication: GLAUCOMA
     Dosage: 1 GTT,  1GTT (OPTHALMIC), (OPHTHALMIC)
     Route: 047
     Dates: start: 20110119

REACTIONS (1)
  - HALLUCINATION, VISUAL [None]
